FAERS Safety Report 8366352-5 (Version None)
Quarter: 2012Q2

REPORT INFORMATION
  Report Type: 
  Country: None (occurrence: None)
  Receive Date: 20120517
  Receipt Date: 20120511
  Transmission Date: 20120825
  Serious: Yes (Hospitalization)
  Sender: FDA-Public Use
  Company Number: US-BAYER-2012-047469

PATIENT
  Age: 31 Year
  Sex: Female

DRUGS (9)
  1. PROBIOTICS [Concomitant]
     Dosage: UNK
     Dates: start: 20090504
  2. SLOW-FE [Concomitant]
     Dosage: UNK
     Dates: start: 20090504
  3. PRILOSEC [Concomitant]
     Indication: GASTROOESOPHAGEAL REFLUX DISEASE
     Dosage: 40 MG, QD
     Route: 048
  4. REPLENEX [Concomitant]
  5. CLARITIN [Concomitant]
     Indication: SEASONAL ALLERGY
     Dosage: OVER THE COUNTER STRENGHT, QD
     Route: 048
  6. YAZ [Suspect]
     Indication: PREMENSTRUAL SYNDROME
  7. ZOLOFT [Concomitant]
     Indication: DEPRESSION
     Dosage: 50 MG, QD
     Route: 048
  8. IUD NOS [Concomitant]
     Dosage: UNK
     Dates: end: 20090504
  9. MULTI-VITAMIN [Concomitant]
     Dosage: UNK
     Dates: start: 20090504

REACTIONS (1)
  - PULMONARY EMBOLISM [None]
